FAERS Safety Report 11426221 (Version 1)
Quarter: 2015Q3

REPORT INFORMATION
  Report Type: Spontaneous
  Country: US (occurrence: US)
  Receive Date: 20150821
  Receipt Date: 20150821
  Transmission Date: 20151125
  Serious: No
  Sender: FDA-Public Use
  Company Number: US-ELI_LILLY_AND_COMPANY-US201304001207

PATIENT
  Sex: Female

DRUGS (10)
  1. SINGULAIR [Concomitant]
     Active Substance: MONTELUKAST SODIUM
  2. METOPROLOL [Concomitant]
     Active Substance: METOPROLOL
  3. ADCIRCA [Suspect]
     Active Substance: TADALAFIL
     Dosage: UNK
     Dates: start: 20130405
  4. XARELTO [Concomitant]
     Active Substance: RIVAROXABAN
  5. PREDNISONE. [Concomitant]
     Active Substance: PREDNISONE
  6. DIAZEPAM. [Concomitant]
     Active Substance: DIAZEPAM
  7. ADVAIR HFA [Concomitant]
     Active Substance: FLUTICASONE PROPIONATE\SALMETEROL XINAFOATE
  8. LOSARTAN. [Concomitant]
     Active Substance: LOSARTAN
  9. ADCIRCA [Suspect]
     Active Substance: TADALAFIL
     Indication: PULMONARY HYPERTENSION
     Dosage: 20 MG, UNK
     Route: 048
     Dates: start: 20130207, end: 20130328
  10. ALBUTEROL. [Concomitant]
     Active Substance: ALBUTEROL

REACTIONS (2)
  - Dizziness [Recovered/Resolved]
  - Muscular weakness [Recovered/Resolved]
